FAERS Safety Report 7212482-0 (Version None)
Quarter: 2010Q4

REPORT INFORMATION
  Report Type: 
  Country: None (occurrence: None)
  Receive Date: 20101229
  Receipt Date: 20101214
  Transmission Date: 20110411
  Serious: Yes (Death, Other)
  Sender: FDA-Public Use
  Company Number: 012457

PATIENT
  Age: 49 Year

DRUGS (2)
  1. BUSULFEX [Suspect]
     Indication: STEM CELL TRANSPLANT
  2. FLUDARABINE PHOSPHATE [Concomitant]

REACTIONS (2)
  - ACUTE MYELOID LEUKAEMIA RECURRENT [None]
  - VENOOCCLUSIVE LIVER DISEASE [None]
